FAERS Safety Report 9462293 (Version 1)
Quarter: 2013Q3

REPORT INFORMATION
  Report Type: Spontaneous
  Country: US (occurrence: US)
  Receive Date: 20130816
  Receipt Date: 20130816
  Transmission Date: 20140515
  Serious: Yes (Life-Threatening, Hospitalization)
  Sender: FDA-Public Use
  Company Number: US-BAYER-2013-098970

PATIENT
  Age: 30 Year
  Sex: Female

DRUGS (1)
  1. MIRENA [Suspect]
     Dosage: 20 MCG/24HR, CONT
     Route: 015
     Dates: start: 2009, end: 20110816

REACTIONS (11)
  - Uterine perforation [None]
  - Injury [None]
  - Ectopic pregnancy with contraceptive device [None]
  - Peritoneal haemorrhage [None]
  - Drug ineffective [None]
  - Pain [None]
  - General physical health deterioration [None]
  - Anxiety [None]
  - Anhedonia [None]
  - Infection [None]
  - Stress [None]
